FAERS Safety Report 12532188 (Version 3)
Quarter: 2016Q4

REPORT INFORMATION
  Report Type: Report from Study
  Country: BR (occurrence: BR)
  Receive Date: 20160706
  Receipt Date: 20161028
  Transmission Date: 20170207
  Serious: Yes (Other)
  Sender: FDA-Public Use
  Company Number: PHHY2016BR084542

PATIENT
  Sex: Female
  Weight: 58 kg

DRUGS (2)
  1. AROMASIN [Concomitant]
     Active Substance: EXEMESTANE
     Indication: NEOPLASM MALIGNANT
     Dosage: 25 MG, QD
     Route: 048
  2. AFINITOR [Suspect]
     Active Substance: EVEROLIMUS
     Indication: BREAST CANCER
     Dosage: 10 MG, QD
     Route: 048
     Dates: start: 20160429

REACTIONS (9)
  - Stomatitis [Recovered/Resolved]
  - Thirst [Recovering/Resolving]
  - Weight decreased [Unknown]
  - Hypersensitivity [Recovering/Resolving]
  - Malignant neoplasm progression [Unknown]
  - Eating disorder [Unknown]
  - Rash [Recovering/Resolving]
  - Aphthous ulcer [Recovered/Resolved]
  - Oral herpes [Recovering/Resolving]
